FAERS Safety Report 20771052 (Version 1)
Quarter: 2022Q2

REPORT INFORMATION
  Report Type: Spontaneous
  Country: US (occurrence: None)
  Receive Date: 20220429
  Receipt Date: 20220429
  Transmission Date: 20220721
  Serious: No
  Sender: FDA-Public Use
  Company Number: None

PATIENT
  Age: 72 Year
  Sex: Male
  Weight: 88.0 kg

DRUGS (8)
  1. TEMOZOLOMIDE [Suspect]
     Active Substance: TEMOZOLOMIDE
     Indication: Brain neoplasm malignant
     Dosage: FREQUENCY : DAILY;?
     Route: 048
  2. VITAMINS [Concomitant]
     Active Substance: VITAMINS
  3. HYDROXYUREA [Concomitant]
     Active Substance: HYDROXYUREA
  4. KEPPRA [Concomitant]
     Active Substance: LEVETIRACETAM
  5. LOSARTAN [Concomitant]
     Active Substance: LOSARTAN
  6. MEGESTROL [Concomitant]
     Active Substance: MEGESTROL
  7. NIFEDIPINE [Concomitant]
     Active Substance: NIFEDIPINE
  8. VITAMIN C [Concomitant]
     Active Substance: ASCORBIC ACID

REACTIONS (2)
  - Hallucination [None]
  - Condition aggravated [None]
